FAERS Safety Report 12958323 (Version 2)
Quarter: 2017Q1

REPORT INFORMATION
  Report Type: Spontaneous
  Country: US (occurrence: US)
  Receive Date: 20161121
  Receipt Date: 20170203
  Transmission Date: 20170428
  Serious: No
  Sender: FDA-Public Use
  Company Number: US-ASTRAZENECA-2016SF13513

PATIENT
  Age: 70 Year
  Sex: Male
  Weight: 68 kg

DRUGS (3)
  1. TUDORZA PRESSAIR [Suspect]
     Active Substance: ACLIDINIUM BROMIDE
     Indication: CHRONIC OBSTRUCTIVE PULMONARY DISEASE
     Dosage: 400 MCG, ONE PUFF PER DAY
     Route: 055
     Dates: start: 2015
  2. HEART MEDICATIONS [Concomitant]
     Active Substance: UNSPECIFIED INGREDIENT
  3. BLOOD THINNERS [Concomitant]
     Active Substance: UNSPECIFIED INGREDIENT

REACTIONS (6)
  - Visual acuity reduced [Unknown]
  - Wheezing [Unknown]
  - Intentional product misuse [Unknown]
  - Cough [Unknown]
  - Incorrect drug administration rate [Unknown]
  - Product quality issue [Unknown]

NARRATIVE: CASE EVENT DATE: 2015
